FAERS Safety Report 7647554-X (Version None)
Quarter: 2011Q3

REPORT INFORMATION
  Report Type: 
  Country: None (occurrence: None)
  Receive Date: 20110801
  Receipt Date: 20110728
  Transmission Date: 20111222
  Serious: Yes (Other)
  Sender: FDA-Public Use
  Company Number: CA-PFIZER INC-2011173138

PATIENT
  Age: 67 Year
  Sex: Female
  Weight: 89 kg

DRUGS (8)
  1. METFORMIN [Concomitant]
     Dosage: 500 MG AT NIGHT
  2. ASPIRIN [Concomitant]
     Dosage: 81 MG, UNK
  3. LIPITOR [Suspect]
     Indication: BLOOD CHOLESTEROL
     Dosage: 20 MG, DAILY
     Route: 048
     Dates: start: 20010101
  4. DILTIAZEM [Concomitant]
     Dosage: 120 MG, UNK
  5. LIPITOR [Suspect]
     Indication: BLOOD PRESSURE
  6. SINGULAIR [Concomitant]
     Indication: ASTHMA
     Dosage: 10 MG, UNK
  7. PAROXETINE [Concomitant]
     Dosage: UNK
  8. RAMIPRIL/HYDROCHLOROTHIAZIDE [Concomitant]
     Dosage: 10/12.5 MG

REACTIONS (6)
  - MYALGIA [None]
  - ARTHRALGIA [None]
  - HAND FRACTURE [None]
  - FALL [None]
  - MUSCLE SPASMS [None]
  - FLANK PAIN [None]
